FAERS Safety Report 21335400 (Version 1)
Quarter: 2022Q3

REPORT INFORMATION
  Report Type: Report from Study
  Country: IT (occurrence: IT)
  Receive Date: 20220915
  Receipt Date: 20220915
  Transmission Date: 20221026
  Serious: Yes (Hospitalization, Other)
  Sender: FDA-Public Use
  Company Number: None

PATIENT
  Age: 12 Year
  Sex: Female
  Weight: 45 kg

DRUGS (6)
  1. VINCRISTINE [Suspect]
     Active Substance: VINCRISTINE
     Indication: Ewing^s sarcoma
     Dosage: 2 MG ON 07/29/2022 AND 08/05/2022 ,  UNIT DOSE : 2 MG , DURATION  : 7 DAYS
     Route: 065
     Dates: start: 20220729, end: 20220805
  2. COSMEGEN [Suspect]
     Active Substance: DACTINOMYCIN
     Indication: Ewing^s sarcoma
     Dosage: 2 MG , UNIT DOSE : 2 MG
     Route: 065
     Dates: start: 20220729, end: 20220729
  3. IFOSFAMIDE [Suspect]
     Active Substance: IFOSFAMIDE
     Indication: Ewing^s sarcoma
     Dosage: 4125 MILLIGRAM DAILY; 4125 MG / DAY , DURATION : 2 DAYS
     Route: 065
     Dates: start: 20220729, end: 20220731
  4. ZOFRAN [Concomitant]
     Active Substance: ONDANSETRON HYDROCHLORIDE
     Indication: Prophylaxis of nausea and vomiting
     Dosage: 8 MILLIGRAM DAILY; 8 MG / DAY , DURATION : 2 DAYS
     Dates: start: 20220729, end: 20220731
  5. DEXAMETHASONE [Concomitant]
     Active Substance: DEXAMETHASONE
     Indication: Product used for unknown indication
     Dosage: 12 MG IN DATA 29/07/2022 , 8 MG IN DATA 30/07/2022 , DURATION : 1 DAYS
     Route: 065
     Dates: start: 20220729, end: 20220730
  6. MESNA [Concomitant]
     Active Substance: MESNA
     Indication: Chemotherapy toxicity attenuation
     Dosage: 550 MG EV IN 30 MIN. + 4100 MG EV IN 22 ORE IN DATA 29/07/2022?2000 MG IN DATA 30/07/2022 , DURATION
     Dates: start: 20220729, end: 20220730

REACTIONS (3)
  - Febrile neutropenia [Recovered/Resolved]
  - Pancytopenia [Recovering/Resolving]
  - Stomatitis [Recovering/Resolving]

NARRATIVE: CASE EVENT DATE: 20220808
